FAERS Safety Report 23444302 (Version 2)
Quarter: 2024Q1

REPORT INFORMATION
  Report Type: Spontaneous
  Country: US (occurrence: US)
  Receive Date: 20240125
  Receipt Date: 20240222
  Transmission Date: 20240410
  Serious: No
  Sender: FDA-Public Use
  Company Number: US-Vifor (International) Inc.-VIT-2024-00473

PATIENT
  Age: 69 Year
  Sex: Male

DRUGS (2)
  1. VELTASSA [Suspect]
     Active Substance: PATIROMER
     Indication: Hyperkalaemia
     Dosage: DISSOLVE AS DIRECTED AND TAKE 1 PACKET BY MOUTH 1 TIME EACH DAY (ONCE DAILY)
     Route: 048
     Dates: start: 20211106
  2. SODIUM BICARBONATE [Concomitant]
     Active Substance: SODIUM BICARBONATE

REACTIONS (1)
  - Dry mouth [Not Recovered/Not Resolved]
